FAERS Safety Report 6429605-3 (Version None)
Quarter: 2009Q4

REPORT INFORMATION
  Report Type: 
  Country: None (occurrence: None)
  Receive Date: 20091103
  Receipt Date: 20091019
  Transmission Date: 20100525
  Serious: Yes (Hospitalization)
  Sender: FDA-Public Use
  Company Number: 2009BM000220

PATIENT
  Age: 5 Year
  Sex: Female
  Weight: 21.36 kg

DRUGS (19)
  1. NAGLAZYME [Suspect]
     Indication: MUCOPOLYSACCHARIDOSIS VI
     Dosage: 1 MG/KG; QW; IVDRP
     Route: 041
     Dates: start: 20081114, end: 20090601
  2. OTHER IMMUNOSUPPRESSANTS [Concomitant]
  3. GANCICLOVIR [Concomitant]
  4. AMPHOTERICIN B [Concomitant]
  5. SEPTRA [Concomitant]
  6. AMOXICILLIN [Concomitant]
  7. CYCLOSPORINE [Concomitant]
  8. PREDNISOLONE [Concomitant]
  9. URSODIOL [Concomitant]
  10. LANSOPRAZOLE [Concomitant]
  11. AMLODIPINE [Concomitant]
  12. CALCIUM CARBONATE [Concomitant]
  13. ERGOCALCIFEROL [Concomitant]
  14. DIPHENHYDRAMINE HCL [Concomitant]
  15. LORAZEPAM [Concomitant]
  16. OXYCODONE HCL [Concomitant]
  17. TRIAMCINOLONE [Concomitant]
  18. HYDROCORTISONE [Concomitant]
  19. PREDNISOLONE [Concomitant]

REACTIONS (13)
  - ABDOMINAL PAIN [None]
  - BACK PAIN [None]
  - BLOOD BILIRUBIN INCREASED [None]
  - BRAIN SCAN ABNORMAL [None]
  - CEREBRAL VENTRICLE DILATATION [None]
  - DISEASE PROGRESSION [None]
  - FALL [None]
  - HYDROCEPHALUS [None]
  - INFLUENZA [None]
  - LEUKODYSTROPHY [None]
  - MUCOPOLYSACCHARIDOSIS VI [None]
  - SLEEP APNOEA SYNDROME [None]
  - VOMITING [None]
